FAERS Safety Report 8661185 (Version 2)
Quarter: 2015Q3

REPORT INFORMATION
  Report Type: Report from Study
  Country: US (occurrence: US)
  Receive Date: 20120711
  Receipt Date: 20150701
  Transmission Date: 20151125
  Serious: Yes (Death, Hospitalization, Other)
  Sender: FDA-Public Use
  Company Number: US-ROCHE-1085589

PATIENT
  Age: 69 Year
  Sex: Male

DRUGS (2)
  1. ZELBORAF [Suspect]
     Active Substance: VEMURAFENIB
     Indication: MALIGNANT MELANOMA
     Route: 065
     Dates: start: 20111107
  2. ZELBORAF [Suspect]
     Active Substance: VEMURAFENIB
     Indication: METASTASES TO NERVOUS SYSTEM

REACTIONS (8)
  - Urinary tract infection [Unknown]
  - White blood cell count increased [Unknown]
  - Gait disturbance [Unknown]
  - Death [Fatal]
  - Seizure [Unknown]
  - Arrhythmia [Unknown]
  - Nervous system disorder [Unknown]
  - Fatigue [Unknown]

NARRATIVE: CASE EVENT DATE: 20111109
